FAERS Safety Report 10201361 (Version 3)
Quarter: 2014Q2

REPORT INFORMATION
  Report Type: Spontaneous
  Country: JP (occurrence: JP)
  Receive Date: 20140528
  Receipt Date: 20140618
  Transmission Date: 20141212
  Serious: Yes (Hospitalization)
  Sender: FDA-Public Use
  Company Number: JP-TAKEDA-THQ2011A04413

PATIENT
  Age: 68 Year
  Sex: Female
  Weight: 46.4 kg

DRUGS (7)
  1. TAKEPRON CAPSULES 15 [Suspect]
     Indication: GASTRITIS PROPHYLAXIS
     Dosage: 15 MG, QD
     Route: 048
     Dates: start: 20070702
  2. FOLIC ACID [Suspect]
     Indication: RHEUMATOID ARTHRITIS
     Dosage: 5 MG, 1/WEEK
     Route: 048
     Dates: start: 20070705
  3. METHOTREXATE [Suspect]
     Indication: RHEUMATOID ARTHRITIS
     Dosage: 8 MG, 1/WEEK
     Route: 048
     Dates: start: 20070731
  4. TOFACITINIB CITRATE [Suspect]
     Indication: RHEUMATOID ARTHRITIS
     Dosage: 5 MG, BID
     Route: 048
     Dates: start: 20080927, end: 20130919
  5. MOBIC [Suspect]
     Indication: RHEUMATOID ARTHRITIS
     Dosage: 10 MG, QD
     Route: 048
     Dates: start: 20070702
  6. FERROMIA [Suspect]
     Indication: ANAEMIA PROPHYLAXIS
     Dosage: 50 MG, QD
     Route: 048
     Dates: start: 20091119
  7. MOHRUS [Concomitant]
     Dosage: UNK
     Dates: start: 20090924

REACTIONS (2)
  - Kyphosis [Not Recovered/Not Resolved]
  - Spondylitic myelopathy [Not Recovered/Not Resolved]
